FAERS Safety Report 7327249-2 (Version None)
Quarter: 2011Q1

REPORT INFORMATION
  Report Type: 
  Country: None (occurrence: None)
  Receive Date: 20110302
  Receipt Date: 20110217
  Transmission Date: 20110831
  Serious: Yes (Other)
  Sender: FDA-Public Use
  Company Number: IR-GENENTECH-314269

PATIENT
  Sex: Female

DRUGS (1)
  1. MABTHERA [Suspect]
     Indication: PSORIASIS
     Dosage: 500 MG, Q2W
     Route: 042
     Dates: start: 20110201

REACTIONS (1)
  - SKIN PLAQUE [None]
